FAERS Safety Report 9881233 (Version 1)
Quarter: 2014Q1

REPORT INFORMATION
  Report Type: Spontaneous
  Country: KR (occurrence: KR)
  Receive Date: 20140207
  Receipt Date: 20140207
  Transmission Date: 20141002
  Serious: Yes (Other)
  Sender: FDA-Public Use
  Company Number: KR-009507513-1402KOR002440

PATIENT
  Age: 68 Year
  Sex: Female

DRUGS (1)
  1. FOSAMAX 70MG TABLET [Suspect]
     Dosage: UNK
     Route: 048
     Dates: start: 1994

REACTIONS (6)
  - Surgery [Unknown]
  - Poor quality sleep [Unknown]
  - Bone density decreased [Unknown]
  - Therapeutic response decreased [Unknown]
  - Medication error [Unknown]
  - Drug dose omission [Unknown]
